FAERS Safety Report 3242728 (Version 1)
Quarter: 2020Q3

REPORT INFORMATION
  Report Type: Spontaneous
  Country: US (occurrence: None)
  Receive Date: 19980708
  Receipt Date: 19980708
  Transmission Date: 20201104
  Serious: Yes (Other)
  Sender: FDA-Public Use
  Company Number: 9805118

PATIENT
  Age: 46 Year
  Sex: Female
  Weight: 90.8 kg

DRUGS (6)
  1. FERROUS SULFATE. [Suspect]
     Active Substance: FERROUS SULFATE
     Indication: ANAEMIA
     Dosage: ORAL
     Route: 048
     Dates: end: 19980209
  2. DARVOCET?N 100 [Concomitant]
     Active Substance: ACETAMINOPHEN\PROPOXYPHENE NAPSYLATE
  3. DOXEPIN [Suspect]
     Active Substance: DOXEPIN
     Indication: TRIGEMINAL NEURALGIA
     Dosage: 75.00 MG TOTAL; DAILY; ORAL
     Route: 048
     Dates: start: 1994, end: 19980219
  4. PERIACTIN [Concomitant]
     Active Substance: CYPROHEPTADINE HYDROCHLORIDE
  5. HYPERICIN [Suspect]
     Active Substance: HYPERICIN
     Dosage: ORAL
     Route: 048
     Dates: start: 199708, end: 19980209
  6. ZYRTEC [Suspect]
     Active Substance: CETIRIZINE HYDROCHLORIDE
     Indication: RASH PRURITIC
     Dosage: 10.00 MG TOTAL; DAILY; ORAL
     Route: 048
     Dates: start: 19971117, end: 19980219

REACTIONS (3)
  - Dermatitis [None]
  - Ecchymosis [None]
  - Anaemia [None]

NARRATIVE: CASE EVENT DATE: 19971220
